FAERS Safety Report 12632943 (Version 1)
Quarter: 2016Q3

REPORT INFORMATION
  Report Type: Spontaneous
  Country: US (occurrence: None)
  Receive Date: 20160808
  Receipt Date: 20160808
  Transmission Date: 20161109
  Serious: Yes (Hospitalization)
  Sender: FDA-Public Use
  Company Number: None

PATIENT
  Age: 86 Year
  Sex: Female
  Weight: 99.79 kg

DRUGS (14)
  1. MIRALAX [Concomitant]
     Active Substance: POLYETHYLENE GLYCOL 3350
  2. CLOPIDOGREL UNICHEM [Suspect]
     Active Substance: CLOPIDOGREL BISULFATE
     Indication: HYPERTENSION
     Dosage: 90 TABLET(S) ONCE A DAY TAKEN BY MOUTH
     Route: 048
  3. NEURONTIN [Concomitant]
     Active Substance: GABAPENTIN
  4. GLUSCISAMINE [Concomitant]
  5. CARVEDILOL (COREG) [Concomitant]
  6. MAGNESIUM OXIDE. [Concomitant]
     Active Substance: MAGNESIUM OXIDE
  7. SENNA S (DOCUSATE/SENNOSIDES) [Concomitant]
  8. HYDROCHLOROTHIAZIDE TAB 25MG, 25 MG UNICHEM [Suspect]
     Active Substance: HYDROCHLOROTHIAZIDE
  9. NORVASC [Concomitant]
     Active Substance: AMLODIPINE BESYLATE
  10. LASIX [Concomitant]
     Active Substance: FUROSEMIDE
  11. GLIMEPIRIDE (AMARYL) [Concomitant]
  12. PROTONIX [Concomitant]
     Active Substance: PANTOPRAZOLE SODIUM
  13. HYDRALAZINE [Concomitant]
     Active Substance: HYDRALAZINE HYDROCHLORIDE
  14. FERROUS SULFAYE (IRON) [Concomitant]

REACTIONS (7)
  - Arthralgia [None]
  - Product use issue [None]
  - Accidental overdose [None]
  - Deafness [None]
  - Gastrointestinal haemorrhage [None]
  - Dyspnoea [None]
  - Product label on wrong product [None]

NARRATIVE: CASE EVENT DATE: 20150110
